FAERS Safety Report 9308340 (Version 3)
Quarter: 2013Q3

REPORT INFORMATION
  Report Type: Spontaneous
  Country: FR (occurrence: FR)
  Receive Date: 20130524
  Receipt Date: 20130705
  Transmission Date: 20140515
  Serious: Yes (Life-Threatening, Hospitalization)
  Sender: FDA-Public Use
  Company Number: FR-GLAXOSMITHKLINE-B0891500A

PATIENT
  Age: 87 Year
  Sex: Female

DRUGS (4)
  1. ARIXTRA [Suspect]
     Indication: ATRIAL FIBRILLATION
     Dosage: 7.5MG PER DAY
     Route: 058
     Dates: start: 20130306, end: 20130314
  2. COUMADINE [Suspect]
     Indication: ATRIAL FIBRILLATION
     Dosage: 2MG SEE DOSAGE TEXT
     Route: 048
     Dates: start: 20130306, end: 20130314
  3. KARDEGIC [Suspect]
     Indication: PRODUCT USED FOR UNKNOWN INDICATION
     Dosage: 75MG PER DAY
     Route: 048
     Dates: start: 20130306, end: 20130313
  4. AMLOR [Concomitant]
     Route: 048

REACTIONS (19)
  - Muscle haemorrhage [Not Recovered/Not Resolved]
  - Hypovolaemic shock [Not Recovered/Not Resolved]
  - Anaemia [Not Recovered/Not Resolved]
  - Haemorrhage [Not Recovered/Not Resolved]
  - Drug interaction [Unknown]
  - Off label use [Unknown]
  - Abdominal distension [Unknown]
  - Hypotension [Unknown]
  - Renal failure [Unknown]
  - Tachycardia [Unknown]
  - Pulse absent [Unknown]
  - Pallor [Unknown]
  - Confusional state [Unknown]
  - Haemodynamic instability [Unknown]
  - Anuria [Unknown]
  - Lymphoedema [Unknown]
  - Disorientation [Unknown]
  - Aggression [Unknown]
  - Intestinal obstruction [Recovering/Resolving]
